FAERS Safety Report 24946282 (Version 1)
Quarter: 2025Q1

REPORT INFORMATION
  Report Type: Spontaneous
  Country: US (occurrence: US)
  Receive Date: 20250210
  Receipt Date: 20250210
  Transmission Date: 20250409
  Serious: Yes (Other)
  Sender: ALKEM
  Company Number: US-ALKEM LABORATORIES LIMITED-US-ALKEM-2024-25730

PATIENT
  Age: 67 Year
  Sex: Male

DRUGS (3)
  1. LINEZOLID [Suspect]
     Active Substance: LINEZOLID
     Indication: Abdominal sepsis
     Dosage: 600 MILLIGRAM, BID (EVERY 12 HR)
     Route: 065
  2. LINEZOLID [Suspect]
     Active Substance: LINEZOLID
     Indication: Pneumonia
  3. LINEZOLID [Suspect]
     Active Substance: LINEZOLID
     Indication: Bacteraemia

REACTIONS (1)
  - Lactic acidosis [Recovered/Resolved]
